FAERS Safety Report 8120645-5 (Version None)
Quarter: 2012Q1

REPORT INFORMATION
  Report Type: 
  Country: None (occurrence: None)
  Receive Date: 20120207
  Receipt Date: 20120131
  Transmission Date: 20120608
  Serious: Yes (Other)
  Sender: FDA-Public Use
  Company Number: JP-ASTRAZENECA-2012SE04449

PATIENT
  Age: 7 Year
  Sex: Female

DRUGS (5)
  1. CANDESARTAN CILEXETIL [Suspect]
     Route: 048
     Dates: start: 20120116
  2. CANDESARTAN CILEXETIL [Suspect]
     Indication: PROPHYLAXIS
     Route: 048
     Dates: start: 20111229, end: 20120111
  3. LISINOPRIL [Concomitant]
     Indication: PROPHYLAXIS
     Route: 048
     Dates: end: 20110420
  4. LISINOPRIL [Concomitant]
     Route: 048
     Dates: start: 20110421
  5. ZADITEN [Concomitant]
     Route: 065
     Dates: start: 20120111

REACTIONS (2)
  - COLD SWEAT [None]
  - ANAPHYLACTIC SHOCK [None]
